FAERS Safety Report 7978981-9 (Version None)
Quarter: 2011Q4

REPORT INFORMATION
  Report Type: 
  Country: None (occurrence: None)
  Receive Date: 20111130
  Receipt Date: 20111121
  Transmission Date: 20120403
  Serious: Yes (Hospitalization, Other)
  Sender: FDA-Public Use
  Company Number: 2011SP001281

PATIENT
  Age: 43 Year
  Sex: Female
  Weight: 88.4514 kg

DRUGS (9)
  1. DIAZEPAM [Concomitant]
  2. MIRTAZAPINE [Concomitant]
  3. PROPRANOLOL [Concomitant]
  4. SEROQUEL [Concomitant]
  5. LYRICA [Concomitant]
  6. NUVARING [Suspect]
     Indication: MENSTRUAL CYCLE MANAGEMENT
     Dosage: ;VAG
     Route: 067
     Dates: start: 20080724, end: 20080905
  7. NUVARING [Suspect]
     Indication: CONTRACEPTION
     Dosage: ;VAG
     Route: 067
     Dates: start: 20080724, end: 20080905
  8. ZYPREXA [Concomitant]
  9. LEVOTHYROXINE SODIUM [Concomitant]

REACTIONS (23)
  - SYNOVITIS [None]
  - BARTHOLIN'S CYST [None]
  - MENOMETRORRHAGIA [None]
  - ABSCESS DRAINAGE [None]
  - PULMONARY EMBOLISM [None]
  - NEURALGIA [None]
  - PNEUMONIA [None]
  - MENISCUS LESION [None]
  - VENOUS STENOSIS [None]
  - ASTHMA [None]
  - MENTAL DISORDER [None]
  - DEPRESSION [None]
  - BLOOD HOMOCYSTEINE INCREASED [None]
  - FIBROCYSTIC BREAST DISEASE [None]
  - OEDEMA PERIPHERAL [None]
  - DIABETES MELLITUS [None]
  - ANXIETY [None]
  - LIGAMENT RUPTURE [None]
  - PSORIASIS [None]
  - IRRITABLE BOWEL SYNDROME [None]
  - HEPATIC STEATOSIS [None]
  - HYPOCOAGULABLE STATE [None]
  - TREMOR [None]
